FAERS Safety Report 22361981 (Version 1)
Quarter: 2023Q2

REPORT INFORMATION
  Report Type: Other
  Country: DE (occurrence: None)
  Receive Date: 20230524
  Receipt Date: 20230524
  Transmission Date: 20230722
  Serious: Yes (Life-Threatening, Hospitalization, Other)
  Sender: FDA-Public Use
  Company Number: DE-ROCHE-3312117

PATIENT
  Age: 73 Year
  Sex: Female
  Weight: 65 kg

DRUGS (9)
  1. GLOFITAMAB [Suspect]
     Active Substance: GLOFITAMAB
     Indication: Diffuse large B-cell lymphoma refractory
     Dosage: DAY 8 CYCLES 1
     Route: 042
     Dates: start: 20221222
  2. GLOFITAMAB [Suspect]
     Active Substance: GLOFITAMAB
     Dosage: CYCLES 5
     Route: 042
     Dates: start: 20230316
  3. GLOFITAMAB [Suspect]
     Active Substance: GLOFITAMAB
     Dosage: CYCLES 6
     Route: 042
     Dates: start: 20230417
  4. GLOFITAMAB [Suspect]
     Active Substance: GLOFITAMAB
     Dosage: DAY 15 CYCLES 1
     Route: 042
     Dates: start: 20221230
  5. GLOFITAMAB [Suspect]
     Active Substance: GLOFITAMAB
     Dosage: CYCLE 2
     Route: 042
     Dates: start: 20230105
  6. GLOFITAMAB [Suspect]
     Active Substance: GLOFITAMAB
     Dosage: CYCLE 3
     Route: 042
     Dates: start: 20230202
  7. GLOFITAMAB [Suspect]
     Active Substance: GLOFITAMAB
     Dosage: CYCLE 4
     Route: 042
     Dates: start: 20230223
  8. OBINUTUZUMAB [Suspect]
     Active Substance: OBINUTUZUMAB
     Indication: Diffuse large B-cell lymphoma refractory
     Route: 042
     Dates: start: 20221215
  9. OBINUTUZUMAB [Suspect]
     Active Substance: OBINUTUZUMAB
     Route: 042
     Dates: start: 20221216

REACTIONS (3)
  - Anaemia [Recovering/Resolving]
  - Leukopenia [Recovered/Resolved]
  - Thrombocytopenia [Recovered/Resolved]

NARRATIVE: CASE EVENT DATE: 20221224
